FAERS Safety Report 5646991-2 (Version None)
Quarter: 2008Q1

REPORT INFORMATION
  Report Type: 
  Country: None (occurrence: None)
  Receive Date: 20080303
  Receipt Date: 20080220
  Transmission Date: 20080703
  Serious: Yes (Other)
  Sender: FDA-Public Use
  Company Number: B0507754A

PATIENT
  Age: 6 Year
  Sex: Male

DRUGS (1)
  1. ZOVIRAX [Suspect]
     Indication: HERPES SIMPLEX OPHTHALMIC
     Dosage: .03G FIVE TIMES PER DAY
     Route: 047
     Dates: start: 20080104, end: 20080204

REACTIONS (5)
  - BLINDNESS [None]
  - CORNEAL SCAR [None]
  - EYE INFLAMMATION [None]
  - INCORRECT DRUG ADMINISTRATION DURATION [None]
  - MYOPIA [None]
